FAERS Safety Report 8771393 (Version 1)
Quarter: 2012Q4

REPORT INFORMATION
  Report Type: 
  Country: CN (occurrence: CN)
  Receive Date: 20120905
  Receipt Date: 20120905
  Transmission Date: 20130627
  Serious: Yes (Hospitalization)
  Sender: FDA-Public Use
  Company Number: CN-ASTRAZENECA-2012SE67923

PATIENT
  Age: 10614 Day
  Sex: Female
  Weight: 51.5 kg

DRUGS (3)
  1. QUETIAPINE [Suspect]
     Indication: SCHIZOPHRENIA
     Route: 048
     Dates: start: 20040301, end: 20110214
  2. QUETIAPINE [Suspect]
     Indication: SCHIZOPHRENIA
     Route: 048
     Dates: start: 20110215, end: 20110314
  3. CLOZAPINE [Suspect]

REACTIONS (4)
  - Schizophrenia [Unknown]
  - Thyroxine decreased [Recovering/Resolving]
  - Tachycardia [Recovered/Resolved]
  - Intentional drug misuse [Unknown]
